FAERS Safety Report 10994851 (Version 1)
Quarter: 2015Q2

REPORT INFORMATION
  Report Type: Spontaneous
  Country: US (occurrence: None)
  Receive Date: 20150406
  Receipt Date: 20150406
  Transmission Date: 20150821
  Serious: Yes (Disabling)
  Sender: FDA-Public Use
  Company Number: None

PATIENT
  Age: 65 Year
  Sex: Male
  Weight: 87.09 kg

DRUGS (3)
  1. BENAZEPRIL HCL [Suspect]
     Active Substance: BENAZEPRIL HYDROCHLORIDE
     Indication: BLOOD PRESSURE
     Dosage: 1 ONCE DAILY TAKEN BY MOUTH
     Route: 048
     Dates: start: 20141114, end: 20141214
  2. PANTOPRAZOLE SOD [Suspect]
     Active Substance: PANTOPRAZOLE SODIUM
     Indication: GASTRITIS
     Dosage: 1 ONCE DAILY TAKEN BY MOUTH
     Route: 048
     Dates: start: 20150115, end: 20150215
  3. AMLODIPINE BESYLATE. [Concomitant]
     Active Substance: AMLODIPINE BESYLATE

REACTIONS (11)
  - Dysphagia [None]
  - Influenza [None]
  - Cough [None]
  - Nasal congestion [None]
  - Sneezing [None]
  - Insomnia [None]
  - Dysphonia [None]
  - Muscle spasms [None]
  - Fatigue [None]
  - Oropharyngeal pain [None]
  - Nasopharyngitis [None]

NARRATIVE: CASE EVENT DATE: 20141114
